FAERS Safety Report 8989245 (Version 1)
Quarter: 2012Q4

REPORT INFORMATION
  Report Type: 
  Country: US (occurrence: US)
  Receive Date: 20121228
  Receipt Date: 20121228
  Transmission Date: 20130627
  Serious: Yes (Other)
  Sender: FDA-Public Use
  Company Number: US-BAYER-2012-135649

PATIENT
  Sex: Female

DRUGS (2)
  1. YAZ [Suspect]
     Indication: BIRTH CONTROL
     Dosage: UNK
     Dates: start: 20060830, end: 200909
  2. YASMIN [Suspect]
     Indication: BIRTH CONTROL
     Dosage: UNK
     Dates: start: 20060830

REACTIONS (4)
  - Gallbladder disorder [None]
  - Pain [None]
  - Injury [None]
  - Pain [None]
